FAERS Safety Report 8444926-0 (Version None)
Quarter: 2012Q2

REPORT INFORMATION
  Report Type: 
  Country: None (occurrence: None)
  Receive Date: 20120618
  Receipt Date: 20120612
  Transmission Date: 20120825
  Serious: Yes (Death)
  Sender: FDA-Public Use
  Company Number: US-CELGENEUS-163-21880-12061789

PATIENT
  Sex: Female
  Weight: 52.21 kg

DRUGS (4)
  1. DEXAMETHASONE [Concomitant]
     Route: 065
  2. HEPARIN [Concomitant]
     Route: 065
  3. VELCADE [Concomitant]
     Route: 065
  4. REVLIMID [Suspect]
     Indication: MULTIPLE MYELOMA
     Dosage: 25 MILLIGRAM
     Route: 048
     Dates: start: 20120510, end: 20120101

REACTIONS (1)
  - DEATH [None]
